FAERS Safety Report 4467850-7 (Version None)
Quarter: 2004Q4

REPORT INFORMATION
  Report Type: 
  Country: None (occurrence: None)
  Receive Date: 20041004
  Receipt Date: 20040921
  Transmission Date: 20050328
  Serious: Yes (Other)
  Sender: FDA-Public Use
  Company Number: 2004068650

PATIENT
  Age: 67 Year
  Sex: Male

DRUGS (1)
  1. VIAGRA [Suspect]
     Indication: ILL-DEFINED DISORDER
     Dosage: 50 MG (50 MG, 2 IN ONE WEEK),
     Dates: start: 20030501, end: 20030802

REACTIONS (10)
  - CATARACT NUCLEAR [None]
  - IRIS TRANSILLUMINATION DEFECT [None]
  - OCULAR HYPERTENSION [None]
  - OPTIC ISCHAEMIC NEUROPATHY [None]
  - PAPILLOEDEMA [None]
  - PHOTOPSIA [None]
  - PIGMENT DISPERSION SYNDROME [None]
  - RETINOPATHY HYPERTENSIVE [None]
  - VISUAL FIELD DEFECT [None]
  - VITREOUS DETACHMENT [None]
